FAERS Safety Report 20408337 (Version 1)
Quarter: 2022Q1

REPORT INFORMATION
  Report Type: Report from Study
  Country: BE (occurrence: None)
  Receive Date: 20220201
  Receipt Date: 20220201
  Transmission Date: 20220423
  Serious: Yes (Hospitalization)
  Sender: FDA-Public Use
  Company Number: BE-ROCHE-3012107

PATIENT

DRUGS (4)
  1. RITUXIMAB [Suspect]
     Active Substance: RITUXIMAB
     Indication: Mantle cell lymphoma
     Dosage: CYCLE 8
     Route: 058
     Dates: start: 20200821
  2. LENALIDOMIDE [Concomitant]
     Active Substance: LENALIDOMIDE
     Indication: Mantle cell lymphoma
     Dosage: CYCLE 16
     Route: 065
     Dates: start: 20211030, end: 20211119
  3. COVID-19 VACCINE [Concomitant]
     Dosage: PFIZER VACCINE
     Route: 065
     Dates: start: 20210421
  4. COVID-19 VACCINE [Concomitant]
     Dosage: PFIZER VACCINE
     Dates: start: 20210526

REACTIONS (1)
  - Lung disorder [Unknown]
